FAERS Safety Report 4971220-2 (Version None)
Quarter: 2006Q2

REPORT INFORMATION
  Report Type: 
  Country: None (occurrence: None)
  Receive Date: 20060413
  Receipt Date: 20050926
  Transmission Date: 20061013
  Serious: Yes (Hospitalization)
  Sender: FDA-Public Use
  Company Number: US-MERCK-0509USA04144

PATIENT
  Age: 70 Year
  Sex: Female

DRUGS (4)
  1. VIOXX [Suspect]
     Indication: PAIN
     Route: 048
     Dates: start: 20031006
  2. VIOXX [Suspect]
     Route: 048
     Dates: start: 20040201
  3. VIOXX [Suspect]
     Route: 048
     Dates: start: 20040401
  4. VIOXX [Suspect]
     Route: 048
     Dates: start: 20040615, end: 20040901

REACTIONS (9)
  - CARDIAC FAILURE CONGESTIVE [None]
  - DEEP VEIN THROMBOSIS [None]
  - DERMATITIS CONTACT [None]
  - FALL [None]
  - GLUCOSE TOLERANCE IMPAIRED [None]
  - NODULE ON EXTREMITY [None]
  - PULMONARY EMBOLISM [None]
  - SHOULDER PAIN [None]
  - UPPER RESPIRATORY TRACT INFECTION [None]
